FAERS Safety Report 5088716-8 (Version None)
Quarter: 2006Q3

REPORT INFORMATION
  Report Type: 
  Country: None (occurrence: None)
  Receive Date: 20060825
  Receipt Date: 20060615
  Transmission Date: 20061208
  Serious: Yes (Death)
  Sender: FDA-Public Use
  Company Number: CCS-2005-001-063

PATIENT
  Age: 68 Year
  Sex: Male

DRUGS (5)
  1. CARVEDILOL [Suspect]
     Indication: CARDIAC FAILURE
     Dosage: 80MG PER DAY
     Route: 048
     Dates: start: 20060126
  2. LISINOPRIL [Concomitant]
     Indication: CORONARY ARTERY DISEASE
     Dosage: 40MG PER DAY
     Route: 048
     Dates: start: 20030501
  3. ASPIRIN [Concomitant]
     Indication: CORONARY ARTERY DISEASE
     Dosage: 81MG PER DAY
     Route: 048
     Dates: start: 19960401
  4. HYDROCHLOROTHIAZIDE [Concomitant]
     Indication: HYPERTENSION
     Dosage: 25MG PER DAY
     Route: 048
     Dates: start: 20050701
  5. ZYRTEC [Concomitant]
     Indication: SEASONAL ALLERGY
     Dosage: 10MG AS REQUIRED
     Route: 048
     Dates: start: 20030801

REACTIONS (2)
  - ENCEPHALOPATHY [None]
  - HYPOTENSION [None]
